FAERS Safety Report 6775132-3 (Version None)
Quarter: 2010Q2

REPORT INFORMATION
  Report Type: 
  Country: None (occurrence: None)
  Receive Date: 20100520
  Receipt Date: 20090731
  Transmission Date: 20101027
  Serious: Yes (Other)
  Sender: FDA-Public Use
  Company Number: 2008051552

PATIENT
  Age: 66 Year
  Sex: Female
  Weight: 74 kg

DRUGS (11)
  1. PROVERA [Suspect]
     Indication: HORMONE REPLACEMENT THERAPY
     Dosage: ORAL
     Route: 048
     Dates: start: 19800101, end: 19990101
  2. PROVERA [Suspect]
     Indication: HORMONE REPLACEMENT THERAPY
     Dosage: ORAL
     Route: 048
     Dates: start: 19800101, end: 19990101
  3. PROVERA [Suspect]
     Indication: HORMONE REPLACEMENT THERAPY
     Dosage: ORAL
     Route: 048
     Dates: start: 19800101, end: 19990101
  4. PROVERA [Suspect]
     Indication: HORMONE REPLACEMENT THERAPY
     Dosage: ORAL
     Route: 048
     Dates: end: 19991101
  5. MEDROXYPROGESTERONE ACETATE [Suspect]
     Indication: HORMONE REPLACEMENT THERAPY
     Dosage: ORAL
     Route: 048
     Dates: start: 19800101, end: 19990101
  6. PREMARIN [Suspect]
     Indication: HORMONE REPLACEMENT THERAPY
     Dates: end: 19991101
  7. PREMPRO [Suspect]
     Indication: HORMONE REPLACEMENT THERAPY
     Dates: start: 19800101, end: 19990101
  8. CYCRIN [Suspect]
     Indication: MENOPAUSE
     Dates: start: 19990301, end: 19990601
  9. MEDROXYPROGESTERONE [Suspect]
     Indication: MENOPAUSE
     Dates: start: 19991001, end: 19991001
  10. CORTEF [Concomitant]
  11. FLORINEF [Concomitant]

REACTIONS (1)
  - BREAST CANCER FEMALE [None]
